FAERS Safety Report 7479644-9 (Version None)
Quarter: 2011Q2

REPORT INFORMATION
  Report Type: 
  Country: None (occurrence: None)
  Receive Date: 20110513
  Receipt Date: 20110503
  Transmission Date: 20111010
  Serious: Yes (Other)
  Sender: FDA-Public Use
  Company Number: US-GENZYME-POMP-1001318

PATIENT
  Sex: Female
  Weight: 122 kg

DRUGS (4)
  1. STEROIDS [Concomitant]
     Indication: PREMEDICATION
  2. LUMIZYME [Suspect]
     Indication: GLYCOGEN STORAGE DISEASE TYPE II
     Dosage: UNK MG/KG, QW
     Route: 042
     Dates: start: 20110328
  3. IBUPROFEN [Concomitant]
     Indication: PREMEDICATION
  4. LUMIZYME [Suspect]
     Dosage: 20 MG/KG, QOW
     Route: 042
     Dates: start: 20101111

REACTIONS (3)
  - INFLUENZA LIKE ILLNESS [None]
  - ARTHRALGIA [None]
  - FATIGUE [None]
